FAERS Safety Report 20127853 (Version 1)
Quarter: 2021Q4

REPORT INFORMATION
  Report Type: Report from Study
  Country: US (occurrence: US)
  Receive Date: 20211129
  Receipt Date: 20211129
  Transmission Date: 20220303
  Serious: Yes (Other)
  Sender: FDA-Public Use
  Company Number: US-Taiho Oncology Inc-EU-2021-03378

PATIENT
  Age: 45 Year
  Sex: Female

DRUGS (10)
  1. LONSURF [Suspect]
     Active Substance: TIPIRACIL HYDROCHLORIDE\TRIFLURIDINE
     Indication: Colon cancer stage IV
     Dosage: CYCLE 1.
     Route: 048
     Dates: start: 20211019
  2. ROBITUSSIN (GUAIFENESIN) [Concomitant]
     Active Substance: GUAIFENESIN
  3. POTASSIUM CHLORIDE [Concomitant]
     Active Substance: POTASSIUM CHLORIDE
     Indication: Hypokalaemia
     Dosage: EXTENDED RELEASE.
     Route: 048
  4. AMLODIPINE [Concomitant]
     Active Substance: AMLODIPINE BESYLATE
     Route: 048
  5. DOXYCYCLINE HYCLATE [Concomitant]
     Active Substance: DOXYCYCLINE HYCLATE
     Route: 048
  6. FIRST MOUTHWASH BLM MUCOUS MEMBRANE [Concomitant]
     Dosage: SUSPENSION.
  7. LEVOTHYROXINE [Concomitant]
     Active Substance: LEVOTHYROXINE
     Route: 048
  8. ONDANSETRON [Concomitant]
     Active Substance: ONDANSETRON
     Dosage: PRN
     Route: 048
  9. SENOKOT [Concomitant]
     Active Substance: SENNOSIDES
     Dosage: 2 TABLETS, PRN
     Route: 048
  10. VITAMIN D3 [Concomitant]
     Active Substance: CHOLECALCIFEROL
     Route: 048

REACTIONS (9)
  - Hypokalaemia [Unknown]
  - Disease progression [Unknown]
  - Nail disorder [Unknown]
  - Pain [Unknown]
  - Arthralgia [Unknown]
  - Malaise [Unknown]
  - Fatigue [Unknown]
  - Nausea [Recovering/Resolving]
  - Taste disorder [Unknown]
